FAERS Safety Report 10465791 (Version 1)
Quarter: 2014Q3

REPORT INFORMATION
  Report Type: Report from Study
  Country: BR (occurrence: BR)
  Receive Date: 20140921
  Receipt Date: 20140921
  Transmission Date: 20150326
  Serious: Yes (Other)
  Sender: FDA-Public Use
  Company Number: PHHY2014BR122415

PATIENT
  Sex: Female
  Weight: 65 kg

DRUGS (3)
  1. ACLASTA [Suspect]
     Active Substance: ZOLEDRONIC ACID
     Indication: OSTEOPOROSIS
     Dosage: UNK, ONCE A YEAR
     Route: 042
     Dates: start: 2013
  2. CALCIUM AND VIT D [Concomitant]
     Indication: OSTEOPOROSIS
     Dosage: 1 DF, DAILY
     Dates: start: 2012
  3. CITRATO DE CALCIO [Concomitant]
     Indication: OSTEOPOROSIS
     Dosage: 1 DF, DAILY
     Dates: start: 2012

REACTIONS (3)
  - Pain [Unknown]
  - Fall [Recovering/Resolving]
  - Upper limb fracture [Recovering/Resolving]
